FAERS Safety Report 5831836-8 (Version None)
Quarter: 2008Q3

REPORT INFORMATION
  Report Type: 
  Country: None (occurrence: None)
  Receive Date: 20080804
  Receipt Date: 20080728
  Transmission Date: 20090109
  Serious: Yes (Death, Congenital Anomaly)
  Sender: FDA-Public Use
  Company Number: GB-ELI_LILLY_AND_COMPANY-GB200805000298

PATIENT

DRUGS (4)
  1. ZYPREXA [Suspect]
     Indication: MENTAL DISORDER
     Dosage: 15 MG, UNK
     Route: 064
     Dates: start: 20030101, end: 20080101
  2. VENLAFAXINE HCL [Concomitant]
     Indication: MENTAL DISORDER
     Dosage: 150 MG, UNK
     Route: 064
     Dates: start: 20030101, end: 20080101
  3. CODEINE PHOSPHATE [Concomitant]
     Indication: PAIN
     Dosage: 60 MG, UNK
     Route: 064
     Dates: start: 20080201, end: 20080201
  4. LACTULOSE [Concomitant]
     Indication: CONSTIPATION
     Dosage: 3.25 MG, UNK
     Route: 064
     Dates: start: 20080201, end: 20080201

REACTIONS (4)
  - DIAPHRAGMATIC HERNIA [None]
  - DRUG EXPOSURE DURING PREGNANCY [None]
  - NEONATAL DISORDER [None]
  - PULMONARY HYPOPLASIA [None]
